FAERS Safety Report 16307650 (Version 4)
Quarter: 2019Q3

REPORT INFORMATION
  Report Type: Spontaneous
  Country: DE (occurrence: DE)
  Receive Date: 20190514
  Receipt Date: 20190722
  Transmission Date: 20191004
  Serious: Yes (Hospitalization, Other)
  Sender: FDA-Public Use
  Company Number: DE-TEVA-2019-DE-1046520

PATIENT
  Age: 11 Year
  Sex: Male
  Weight: 57 kg

DRUGS (1)
  1. KINECTEEN [Suspect]
     Active Substance: METHYLPHENIDATE
     Indication: ATTENTION DEFICIT/HYPERACTIVITY DISORDER
     Dosage: 1 DOSAGE FORMS DAILY; DISCREPANT INFORMATION ABOUT STRENGTH: 18 MG AND 36 MG WERE REPORTED
     Route: 065
     Dates: start: 201811, end: 20190520

REACTIONS (10)
  - Panic attack [Unknown]
  - Pallor [Unknown]
  - Daydreaming [Unknown]
  - Product use issue [Unknown]
  - Off label use [Unknown]
  - Irritability [Unknown]
  - Aggression [Unknown]
  - Abnormal behaviour [Unknown]
  - Drug ineffective [Unknown]
  - Personality change [Unknown]

NARRATIVE: CASE EVENT DATE: 20190415
